FAERS Safety Report 10067187 (Version 1)
Quarter: 2014Q2

REPORT INFORMATION
  Report Type: Spontaneous
  Country: ES (occurrence: None)
  Receive Date: 20140407
  Receipt Date: 20140407
  Transmission Date: 20141212
  Serious: Yes (Hospitalization)
  Sender: FDA-Public Use
  Company Number: DEP_01963_2014

PATIENT
  Age: 57 Year
  Sex: Female

DRUGS (3)
  1. PECFENT [Suspect]
     Indication: PRODUCT USED FOR UNKNOWN INDICATION
     Dosage: 400 MCG.1BOTTLE NASAL)
  2. FENTANYL [Concomitant]
  3. CETUXIMAB [Concomitant]

REACTIONS (4)
  - Loss of consciousness [None]
  - Respiratory disorder [None]
  - Oxygen saturation decreased [None]
  - Incorrect dose administered [None]
